FAERS Safety Report 5673971-3 (Version None)
Quarter: 2008Q1

REPORT INFORMATION
  Report Type: 
  Country: None (occurrence: None)
  Receive Date: 20080317
  Receipt Date: 20080307
  Transmission Date: 20080703
  Serious: Yes (Disabling, Other)
  Sender: FDA-Public Use
  Company Number: 18648

PATIENT
  Age: 6 Year
  Sex: Female

DRUGS (4)
  1. VINCRISTINE [Suspect]
     Indication: MEDULLOBLASTOMA
     Dosage: 1 MG/M2 PER _CYCLE
  2. RADIATION [Suspect]
     Indication: MEDULLOBLASTOMA
  3. LOMUSTINE [Suspect]
     Indication: MEDULLOBLASTOMA
     Dosage: 100 MG/M2 PER _CYCLE
  4. PROCARBAZINE [Suspect]
     Indication: MEDULLOBLASTOMA
     Dosage: 100 MG/M2 PER _CYCLE

REACTIONS (4)
  - ASTROCYTOMA, LOW GRADE [None]
  - CEREBELLAR ATAXIA [None]
  - MOTOR DYSFUNCTION [None]
  - PARAESTHESIA [None]
